FAERS Safety Report 19892422 (Version 1)
Quarter: 2021Q3

REPORT INFORMATION
  Report Type: Spontaneous
  Country: CO (occurrence: CO)
  Receive Date: 20210929
  Receipt Date: 20210929
  Transmission Date: 20211014
  Serious: Yes (Hospitalization)
  Sender: FDA-Public Use
  Company Number: CO-DRREDDYS-LIT/COL/21/0140455

PATIENT
  Age: 70 Year
  Sex: Male

DRUGS (4)
  1. LOSARTAN. [Concomitant]
     Active Substance: LOSARTAN
     Indication: PRODUCT USED FOR UNKNOWN INDICATION
  2. METOPROLOL SUCCINATE. [Concomitant]
     Active Substance: METOPROLOL SUCCINATE
     Indication: PRODUCT USED FOR UNKNOWN INDICATION
  3. ABIRATERONE. [Suspect]
     Active Substance: ABIRATERONE ACETATE
     Indication: HORMONE-REFRACTORY PROSTATE CANCER
  4. LEUPROLIDE [Suspect]
     Active Substance: LEUPROLIDE
     Indication: HORMONE-REFRACTORY PROSTATE CANCER
     Dosage: 7.5 MG MONTHLY

REACTIONS (3)
  - Hypokalaemia [Recovered/Resolved]
  - Long QT syndrome [Recovered/Resolved]
  - Hypomagnesaemia [Recovered/Resolved]
